FAERS Safety Report 23048520 (Version 1)
Quarter: 2023Q4

REPORT INFORMATION
  Report Type: Other
  Country: US (occurrence: None)
  Receive Date: 20231010
  Receipt Date: 20231010
  Transmission Date: 20240110
  Serious: No
  Sender: FDA-Public Use
  Company Number: US-ROCHE-3435421

PATIENT
  Age: 51 Year
  Sex: Female
  Weight: 61.29 kg

DRUGS (2)
  1. OCREVUS [Suspect]
     Active Substance: OCRELIZUMAB
     Indication: Relapsing-remitting multiple sclerosis
     Route: 042
     Dates: start: 202008
  2. VITAMIN D3 [Concomitant]
     Active Substance: CHOLECALCIFEROL

REACTIONS (4)
  - Sinusitis [Not Recovered/Not Resolved]
  - Tinea infection [Not Recovered/Not Resolved]
  - Oral herpes [Recovered/Resolved]
  - Menopause [Not Recovered/Not Resolved]

NARRATIVE: CASE EVENT DATE: 20200801
